FAERS Safety Report 4631198-8 (Version None)
Quarter: 2005Q2

REPORT INFORMATION
  Report Type: 
  Country: None (occurrence: None)
  Receive Date: 20050407
  Receipt Date: 20050407
  Transmission Date: 20051028
  Serious: Yes (Life-Threatening, Hospitalization)
  Sender: FDA-Public Use
  Company Number: None

PATIENT
  Age: 53 Year
  Sex: Female
  Weight: 55 kg

DRUGS (9)
  1. AZATHIOPRINE [Suspect]
     Indication: AUTOIMMUNE HEPATITIS
     Dosage: 75 MG DAILY PO
     Route: 048
     Dates: start: 20031201
  2. AZATHIOPRINE [Suspect]
     Indication: AUTOIMMUNE HEPATITIS
     Dosage: 75 MG DAILY PO
     Route: 048
     Dates: start: 20041028
  3. PREDNISONE [Concomitant]
  4. ALENDRONATE SODIUM [Concomitant]
  5. SPIRONOLACTONE [Concomitant]
  6. FUROSEMIDE [Concomitant]
  7. PANTOPRAZOLE SODIUM [Concomitant]
  8. HYDROXYZINE [Concomitant]
  9. FOLIC ACID [Concomitant]

REACTIONS (1)
  - PANCYTOPENIA [None]
